FAERS Safety Report 11799820 (Version 2)
Quarter: 2015Q4

REPORT INFORMATION
  Report Type: Spontaneous
  Country: DE (occurrence: DE)
  Receive Date: 20151203
  Receipt Date: 20151211
  Transmission Date: 20160305
  Serious: Yes (Life-Threatening, Hospitalization, Disabling)
  Sender: FDA-Public Use
  Company Number: DE-JNJFOC-20151200394

PATIENT
  Age: 78 Year
  Sex: Female
  Weight: 70 kg

DRUGS (5)
  1. AMLODIPINE [Concomitant]
     Active Substance: AMLODIPINE BESYLATE
     Route: 065
     Dates: start: 200404
  2. XARELTO [Suspect]
     Active Substance: RIVAROXABAN
     Indication: CEREBROVASCULAR ACCIDENT PROPHYLAXIS
     Route: 048
     Dates: start: 20150930, end: 20151026
  3. OXCARBAZEPINE. [Concomitant]
     Active Substance: OXCARBAZEPINE
     Route: 065
     Dates: start: 20150922
  4. XARELTO [Suspect]
     Active Substance: RIVAROXABAN
     Indication: ATRIAL FIBRILLATION
     Route: 048
     Dates: start: 20150930, end: 20151026
  5. METOPROLOL [Concomitant]
     Active Substance: METOPROLOL
     Route: 065
     Dates: start: 201212

REACTIONS (1)
  - Cerebral haemorrhage [Not Recovered/Not Resolved]

NARRATIVE: CASE EVENT DATE: 20151020
